FAERS Safety Report 18340267 (Version 5)
Quarter: 2021Q1

REPORT INFORMATION
  Report Type: Spontaneous
  Country: DE (occurrence: DE)
  Receive Date: 20201002
  Receipt Date: 20210118
  Transmission Date: 20210419
  Serious: Yes (Hospitalization)
  Sender: FDA-Public Use
  Company Number: DE-BAUSCH-BL-2020-028074

PATIENT
  Age: 49 Year
  Sex: Male
  Weight: 80 kg

DRUGS (10)
  1. PREDNISOLONE. [Suspect]
     Active Substance: PREDNISOLONE
     Indication: LIVER TRANSPLANT
     Route: 048
     Dates: start: 20200908, end: 20200909
  2. PREDNISOLONE. [Suspect]
     Active Substance: PREDNISOLONE
     Indication: PROPHYLAXIS
     Route: 065
     Dates: start: 20200915, end: 20200917
  3. PREDNISOLONE. [Suspect]
     Active Substance: PREDNISOLONE
     Route: 065
     Dates: start: 20200924
  4. PREDNISOLONE. [Suspect]
     Active Substance: PREDNISOLONE
     Route: 065
     Dates: start: 20200920, end: 20200921
  5. PREDNISOLONE. [Suspect]
     Active Substance: PREDNISOLONE
     Route: 048
     Dates: start: 20200914, end: 20200915
  6. PREDNISOLONE. [Suspect]
     Active Substance: PREDNISOLONE
     Indication: LIVER TRANSPLANT
     Route: 065
     Dates: start: 20200910, end: 20200911
  7. PREDNISOLONE. [Suspect]
     Active Substance: PREDNISOLONE
     Route: 065
     Dates: start: 20200918, end: 20200919
  8. PREDNISOLONE. [Suspect]
     Active Substance: PREDNISOLONE
     Route: 065
     Dates: start: 20200922, end: 20200923
  9. PREDNISOLONE. [Suspect]
     Active Substance: PREDNISOLONE
     Route: 048
     Dates: start: 20200912, end: 20200913
  10. PREDNISOLONE. [Suspect]
     Active Substance: PREDNISOLONE
     Indication: PROPHYLAXIS
     Route: 048
     Dates: start: 20200910, end: 20200910

REACTIONS (1)
  - Wound infection [Recovered/Resolved]

NARRATIVE: CASE EVENT DATE: 20200919
